FAERS Safety Report 11580102 (Version 3)
Quarter: 2015Q4

REPORT INFORMATION
  Report Type: Spontaneous
  Country: US (occurrence: US)
  Receive Date: 20150930
  Receipt Date: 20151008
  Transmission Date: 20160304
  Serious: No
  Sender: FDA-Public Use
  Company Number: PHEH2015US018981

PATIENT
  Age: 88 Year
  Sex: Female

DRUGS (2)
  1. EXELON PATCH [Suspect]
     Active Substance: RIVASTIGMINE
     Indication: DEMENTIA ALZHEIMER^S TYPE
     Dosage: 9.5 MG, UNK
     Route: 062
  2. EXELON [Suspect]
     Active Substance: RIVASTIGMINE TARTRATE
     Route: 048

REACTIONS (2)
  - Vomiting [Unknown]
  - Nausea [Unknown]
